FAERS Safety Report 4764077-6 (Version None)
Quarter: 2005Q3

REPORT INFORMATION
  Report Type: 
  Country: None (occurrence: None)
  Receive Date: 20050906
  Receipt Date: 20050614
  Transmission Date: 20060218
  Serious: No
  Sender: FDA-Public Use
  Company Number: 2005-BP-10038BP

PATIENT
  Age: 75 Year
  Sex: Male

DRUGS (5)
  1. SPIRIVA [Suspect]
     Indication: CHRONIC OBSTRUCTIVE PULMONARY DISEASE
     Dosage: 18 MCG (18 MCG, QD), IH
     Route: 055
     Dates: start: 20041201
  2. SYNTHROID [Concomitant]
  3. TAGAMET [Concomitant]
  4. VALIUM [Concomitant]
  5. TYLENOL [Concomitant]

REACTIONS (2)
  - JOINT SWELLING [None]
  - VISION BLURRED [None]
